FAERS Safety Report 12115301 (Version 1)
Quarter: 2016Q1

REPORT INFORMATION
  Report Type: Spontaneous
  Country: DK (occurrence: DK)
  Receive Date: 20160225
  Receipt Date: 20160225
  Transmission Date: 20160526
  Serious: Yes (Hospitalization)
  Sender: FDA-Public Use
  Company Number: DK-FRESENIUS KABI-FK201600865

PATIENT
  Age: 56 Year
  Sex: Female

DRUGS (12)
  1. DEXAMETHASONE. [Concomitant]
     Active Substance: DEXAMETHASONE
     Indication: NEOPLASM MALIGNANT
  2. ZOVIR [Concomitant]
     Active Substance: ACYCLOVIR
     Indication: HERPES VIRUS INFECTION
  3. MABTHERA [Suspect]
     Active Substance: RITUXIMAB
     Indication: B-CELL LYMPHOMA
     Route: 042
     Dates: start: 20140922, end: 201411
  4. PANTOPRAZOL ACTAVIS [Concomitant]
     Active Substance: PANTOPRAZOLE SODIUM
     Indication: GASTROOESOPHAGEAL REFLUX PROPHYLAXIS
  5. ALLOPURINOL DAK [Concomitant]
     Indication: GOUT
  6. SULFAMETOXAZOL MED TRIMETOPRIM DAK [Concomitant]
     Indication: INFECTION PROPHYLAXIS
  7. HOLOXAN [Suspect]
     Active Substance: IFOSFAMIDE
     Indication: B-CELL LYMPHOMA
     Route: 042
     Dates: start: 20140922, end: 201411
  8. UROMITEXAN [Concomitant]
     Active Substance: MESNA
     Dates: start: 20140922
  9. CARBOPLATIN INJECTION 10MG/ML [Suspect]
     Active Substance: CARBOPLATIN
     Indication: B-CELL LYMPHOMA
     Route: 042
     Dates: start: 20140922, end: 201411
  10. ETOPOSID EBEWE [Suspect]
     Active Substance: ETOPOSIDE
     Indication: B-CELL LYMPHOMA
     Route: 042
     Dates: start: 20140922, end: 201411
  11. GASTRO-TIMELETS [Concomitant]
     Indication: NAUSEA
  12. KALEORID [Concomitant]
     Active Substance: POTASSIUM CHLORIDE
     Indication: MINERAL SUPPLEMENTATION

REACTIONS (5)
  - Epilepsy [Recovered/Resolved]
  - Posterior reversible encephalopathy syndrome [Recovered/Resolved]
  - Slow speech [Recovered/Resolved]
  - Hypertension [Unknown]
  - Brain oedema [Recovering/Resolving]

NARRATIVE: CASE EVENT DATE: 201411
